FAERS Safety Report 12658230 (Version 1)
Quarter: 2016Q3

REPORT INFORMATION
  Report Type: Spontaneous
  Country: US (occurrence: US)
  Receive Date: 20160817
  Receipt Date: 20160817
  Transmission Date: 20161109
  Serious: No
  Sender: FDA-Public Use
  Company Number: US-BEH-2016072369

PATIENT
  Sex: Female
  Weight: 80.27 kg

DRUGS (21)
  1. HIZENTRA [Suspect]
     Active Substance: HUMAN IMMUNOGLOBULIN G
     Dosage: UNK
     Route: 058
  2. HIZENTRA [Suspect]
     Active Substance: HUMAN IMMUNOGLOBULIN G
     Dosage: 15 G, QW
     Route: 058
     Dates: start: 20160311
  3. LIDOCAINE. [Concomitant]
     Active Substance: LIDOCAINE
  4. XANAX [Concomitant]
     Active Substance: ALPRAZOLAM
  5. PATANASE [Concomitant]
     Active Substance: OLOPATADINE HYDROCHLORIDE
  6. CYMBALTA [Concomitant]
     Active Substance: DULOXETINE HYDROCHLORIDE
  7. HIZENTRA [Suspect]
     Active Substance: HUMAN IMMUNOGLOBULIN G
     Indication: IMMUNODEFICIENCY COMMON VARIABLE
     Dosage: UNK
     Route: 058
  8. DIPHENHYDRAMINE. [Concomitant]
     Active Substance: DIPHENHYDRAMINE
  9. HYZAAR [Concomitant]
     Active Substance: HYDROCHLOROTHIAZIDE\LOSARTAN POTASSIUM
  10. FOLIC ACID. [Concomitant]
     Active Substance: FOLIC ACID
  11. EPIPEN [Concomitant]
     Active Substance: EPINEPHRINE
  12. POTASSIUM [Concomitant]
     Active Substance: POTASSIUM
  13. DEXILANT [Concomitant]
     Active Substance: DEXLANSOPRAZOLE
  14. HIZENTRA [Suspect]
     Active Substance: HUMAN IMMUNOGLOBULIN G
     Dosage: UNK
     Route: 058
  15. ACETAMINOPHEN. [Concomitant]
     Active Substance: ACETAMINOPHEN
  16. VERAMYST [Concomitant]
     Active Substance: FLUTICASONE FUROATE
  17. LOMOTIL [Concomitant]
     Active Substance: ATROPINE SULFATE\DIPHENOXYLATE HYDROCHLORIDE
  18. CARAFATE [Concomitant]
     Active Substance: SUCRALFATE
  19. PLAQUENIL                          /00072602/ [Concomitant]
     Active Substance: HYDROXYCHLOROQUINE DIPHOSPHATE
  20. PROAIR HFA [Concomitant]
     Active Substance: ALBUTEROL SULFATE
  21. ZYRTEC [Concomitant]
     Active Substance: CETIRIZINE HYDROCHLORIDE

REACTIONS (5)
  - Petechiae [Unknown]
  - Injection site pruritus [Unknown]
  - Skin infection [Unknown]
  - Psoriasis [Unknown]
  - Injection site erythema [Unknown]
